FAERS Safety Report 15206059 (Version 1)
Quarter: 2018Q3

REPORT INFORMATION
  Report Type: Spontaneous
  Country: IT (occurrence: IT)
  Receive Date: 20180727
  Receipt Date: 20180727
  Transmission Date: 20181010
  Serious: Yes (Hospitalization)
  Sender: FDA-Public Use
  Company Number: IT-TEVA-2018-IT-931033

PATIENT
  Age: 47 Year
  Sex: Female

DRUGS (4)
  1. DEPAKIN CHRONO 300 MG COMPRESSE A RILASCIO PROLUNGATO [Concomitant]
     Active Substance: VALPROIC ACID
     Route: 065
  2. QUETIAPINE. [Suspect]
     Active Substance: QUETIAPINE
     Indication: INTENTIONAL SELF-INJURY
     Route: 065
     Dates: start: 20180505, end: 20180505
  3. TRITTICO 75 MG COMPRESSE A RILASCIO PROLUNGATO [Concomitant]
     Active Substance: TRAZODONE HYDROCHLORIDE
     Route: 065
  4. LIBRIUM [Suspect]
     Active Substance: CHLORDIAZEPOXIDE HYDROCHLORIDE
     Indication: INTENTIONAL SELF-INJURY
     Route: 065
     Dates: start: 20180505, end: 20180505

REACTIONS (2)
  - Sopor [Unknown]
  - Drug abuse [Unknown]

NARRATIVE: CASE EVENT DATE: 20180505
